FAERS Safety Report 9172104 (Version 1)
Quarter: 2013Q1

REPORT INFORMATION
  Report Type: Spontaneous
  Country: DE (occurrence: DE)
  Receive Date: 20130319
  Receipt Date: 20130319
  Transmission Date: 20140127
  Serious: Yes (Other)
  Sender: FDA-Public Use
  Company Number: DE-PFIZER INC-2012303178

PATIENT
  Age: 70 Year
  Sex: Female

DRUGS (4)
  1. LYRICA [Suspect]
     Dosage: 150 MG, UNK
     Dates: start: 20100809
  2. LYRICA [Suspect]
     Dosage: 150 MG EVERY 3 DAYS
     Dates: start: 20121009
  3. METFORMIN [Concomitant]
     Dosage: 1000, 2X1
  4. RAMIPRIL [Concomitant]
     Dosage: 7.5 MG, 1X/DAY

REACTIONS (3)
  - Visual impairment [Unknown]
  - Oscillopsia [Unknown]
  - Vision blurred [Unknown]
